FAERS Safety Report 8554542-8 (Version None)
Quarter: 2012Q3

REPORT INFORMATION
  Report Type: 
  Country: None (occurrence: None)
  Receive Date: 20120731
  Receipt Date: 20120725
  Transmission Date: 20120928
  Serious: Yes (Other)
  Sender: FDA-Public Use
  Company Number: US-BRISTOL-MYERS SQUIBB COMPANY-16765950

PATIENT
  Age: 58 Year
  Sex: Male

DRUGS (1)
  1. YERVOY [Suspect]

REACTIONS (2)
  - MALAISE [None]
  - INFECTION [None]
